FAERS Safety Report 19159212 (Version 2)
Quarter: 2021Q2

REPORT INFORMATION
  Report Type: Spontaneous
  Country: IT (occurrence: IT)
  Receive Date: 20210420
  Receipt Date: 20210510
  Transmission Date: 20210717
  Serious: Yes (Other)
  Sender: FDA-Public Use
  Company Number: IT-ORGANON-O2104ITA001271

PATIENT
  Age: 4 Year
  Sex: Male

DRUGS (2)
  1. SINGULAIR [Suspect]
     Active Substance: MONTELUKAST SODIUM
     Indication: ASTHMA
     Dosage: 4 MILLIGRAM, QD, OCCUPATIONAL EXPOSURE
     Route: 048
     Dates: start: 20191001, end: 20210114
  2. MONTEGEN [Suspect]
     Active Substance: MONTELUKAST SODIUM
     Dosage: UNK

REACTIONS (7)
  - Muscle rigidity [Recovered/Resolved with Sequelae]
  - Hallucination [Recovered/Resolved with Sequelae]
  - Abnormal dreams [Recovered/Resolved with Sequelae]
  - Restlessness [Recovered/Resolved with Sequelae]
  - Aggression [Recovered/Resolved with Sequelae]
  - Nocturnal fear [Recovered/Resolved with Sequelae]
  - Somnambulism [Recovered/Resolved with Sequelae]

NARRATIVE: CASE EVENT DATE: 20200404
